FAERS Safety Report 14242160 (Version 1)
Quarter: 2017Q4

REPORT INFORMATION
  Report Type: Spontaneous
  Country: US (occurrence: US)
  Receive Date: 20171130
  Receipt Date: 20171130
  Transmission Date: 20180321
  Serious: Yes (Hospitalization)
  Sender: FDA-Public Use
  Company Number: None

PATIENT
  Age: 60 Year
  Sex: Male
  Weight: 101.25 kg

DRUGS (10)
  1. 0.9% NSS PRES. FREE [Concomitant]
  2. LIDOCAINE. [Suspect]
     Active Substance: LIDOCAINE
     Indication: LOCAL ANAESTHESIA
     Dosage: ?          OTHER FREQUENCY:ONE TIME-LOCAL;?
     Route: 059
     Dates: start: 20170622
  3. LIDOCAINE. [Suspect]
     Active Substance: LIDOCAINE
     Indication: RADICULOPATHY
     Dosage: ?          OTHER FREQUENCY:ONE TIME-LOCAL;?
     Route: 059
     Dates: start: 20170622
  4. LIDOCAINE-PRES. FREE [Suspect]
     Active Substance: LIDOCAINE HYDROCHLORIDE
     Indication: INTERVERTEBRAL DISC DEGENERATION
     Dosage: ?          OTHER FREQUENCY:ONE TIME;?
     Route: 008
     Dates: start: 20170622
  5. LIDOCAINE. [Suspect]
     Active Substance: LIDOCAINE
     Indication: INTERVERTEBRAL DISC DEGENERATION
     Dosage: ?          OTHER FREQUENCY:ONE TIME-LOCAL;?
     Route: 059
     Dates: start: 20170622
  6. LIDOCAINE-PRES. FREE [Suspect]
     Active Substance: LIDOCAINE HYDROCHLORIDE
     Indication: RADICULOPATHY
     Dosage: ?          OTHER FREQUENCY:ONE TIME;?
     Route: 008
     Dates: start: 20170622
  7. LIDOCAINE-PRES. FREE [Suspect]
     Active Substance: LIDOCAINE HYDROCHLORIDE
     Indication: LOCAL ANAESTHESIA
     Dosage: ?          OTHER FREQUENCY:ONE TIME;?
     Route: 008
     Dates: start: 20170622
  8. LIDOCAINE-PRES. FREE [Suspect]
     Active Substance: LIDOCAINE HYDROCHLORIDE
     Indication: EPIDURAL ANAESTHESIA
     Dosage: ?          OTHER FREQUENCY:ONE TIME;?
     Route: 008
     Dates: start: 20170622
  9. KENALOG [Concomitant]
     Active Substance: TRIAMCINOLONE ACETONIDE
  10. OMNIPAQUE [Concomitant]
     Active Substance: IOHEXOL

REACTIONS (5)
  - Back pain [None]
  - Paraspinal abscess [None]
  - Fungal test positive [None]
  - Shigella test positive [None]
  - Candida infection [None]

NARRATIVE: CASE EVENT DATE: 20170824
